FAERS Safety Report 9402982 (Version 1)
Quarter: 2013Q3

REPORT INFORMATION
  Report Type: Spontaneous
  Country: ES (occurrence: ES)
  Receive Date: 20130716
  Receipt Date: 20130716
  Transmission Date: 20140515
  Serious: Yes (Hospitalization)
  Sender: FDA-Public Use
  Company Number: ES-B.I. PHARMACEUTICALS,INC./RIDGEFIELD-2013-ES-00345ES

PATIENT
  Age: 63 Year
  Sex: Female

DRUGS (5)
  1. TRAJENTA [Suspect]
     Dosage: 100 MG
     Route: 048
     Dates: start: 20130709
  2. METFORMINA [Suspect]
     Indication: TYPE 2 DIABETES MELLITUS
  3. METFORMINA [Suspect]
     Dates: start: 20130709
  4. SIMVASTATINA [Concomitant]
     Indication: DYSLIPIDAEMIA
  5. OMEPRAZOL [Concomitant]
     Indication: PROPHYLAXIS AGAINST GASTROINTESTINAL ULCER

REACTIONS (2)
  - Suicide attempt [Recovered/Resolved]
  - Intentional overdose [Unknown]
